FAERS Safety Report 4436545-8 (Version None)
Quarter: 2004Q3

REPORT INFORMATION
  Report Type: 
  Country: None (occurrence: None)
  Receive Date: 20040830
  Receipt Date: 20040621
  Transmission Date: 20050211
  Serious: Yes (Other)
  Sender: FDA-Public Use
  Company Number: US-BRISTOL-MYERS SQUIBB COMPANY-12620308

PATIENT
  Age: 9 Year
  Sex: Male
  Weight: 71 kg

DRUGS (6)
  1. ABILIFY [Suspect]
     Indication: ANXIETY
     Route: 048
  2. ABILIFY [Suspect]
     Indication: BIPOLAR DISORDER
     Route: 048
  3. STRATTERA [Concomitant]
  4. ZOLOFT [Concomitant]
  5. FLUORIDE [Concomitant]
  6. MULTI-VITAMIN [Concomitant]

REACTIONS (2)
  - ABNORMAL BEHAVIOUR [None]
  - WEIGHT INCREASED [None]
